FAERS Safety Report 8547958-7 (Version None)
Quarter: 2012Q3

REPORT INFORMATION
  Report Type: 
  Country: None (occurrence: None)
  Receive Date: 20120729
  Receipt Date: 20120718
  Transmission Date: 20120928
  Serious: Yes (Hospitalization, Disabling, Other)
  Sender: FDA-Public Use
  Company Number: US-MERCK SHARP & DOHME-1201USA00333

PATIENT

DRUGS (7)
  1. FOSAMAX PLUS D [Suspect]
     Indication: BONE LOSS
     Dosage: 70-2800
     Route: 048
     Dates: start: 20060430, end: 20110805
  2. CALCIUM (UNSPECIFIED) [Concomitant]
     Indication: PRODUCT USED FOR UNKNOWN INDICATION
     Dosage: 600 IU, QD
  3. FOSAMAX [Suspect]
     Dosage: 70 MG, UNK
     Route: 048
     Dates: start: 20091109, end: 20110215
  4. FOSAMAX [Suspect]
     Indication: OSTEOPOROSIS
  5. FOSAMAX [Suspect]
     Indication: BONE LOSS
     Dosage: 70 MG, UNK
     Route: 048
     Dates: start: 20010122, end: 20090511
  6. VITAMIN D (UNSPECIFIED) [Concomitant]
     Indication: PRODUCT USED FOR UNKNOWN INDICATION
     Dosage: 1000 IU, QD
  7. MULTI-VITAMINS [Concomitant]
     Indication: PRODUCT USED FOR UNKNOWN INDICATION
     Dosage: UNK UNK, QD

REACTIONS (26)
  - EXOSTOSIS [None]
  - VITAMIN D DEFICIENCY [None]
  - HYPOAESTHESIA [None]
  - LIGAMENT SPRAIN [None]
  - JOINT EFFUSION [None]
  - SPINAL FRACTURE [None]
  - MENISCUS LESION [None]
  - VENTRICULAR EXTRASYSTOLES [None]
  - BLADDER DISORDER [None]
  - APPENDIX DISORDER [None]
  - LUNG DISORDER [None]
  - NODAL OSTEOARTHRITIS [None]
  - FALL [None]
  - TONSILLAR DISORDER [None]
  - INTERVERTEBRAL DISC DEGENERATION [None]
  - TIBIA FRACTURE [None]
  - SPINAL OSTEOARTHRITIS [None]
  - PARAESTHESIA [None]
  - DRUG INEFFECTIVE [None]
  - FEMUR FRACTURE [None]
  - CHEST PAIN [None]
  - INTERVERTEBRAL DISC DISORDER [None]
  - OSTEOARTHRITIS [None]
  - OSTEOSCLEROSIS [None]
  - MUSCLE STRAIN [None]
  - ARTHRALGIA [None]
